FAERS Safety Report 8268723-4 (Version None)
Quarter: 2012Q1

REPORT INFORMATION
  Report Type: 
  Country: None (occurrence: None)
  Receive Date: 20120327
  Receipt Date: 20091215
  Transmission Date: 20120608
  Serious: Yes (Other)
  Sender: FDA-Public Use
  Company Number: PHEH2009US13873

PATIENT
  Age: 80 Year
  Sex: Male
  Weight: 70 kg

DRUGS (4)
  1. GLEEVEC [Suspect]
     Indication: LEIOMYOSARCOMA
     Dosage: 400 MG, QD, ORAL
     Route: 048
     Dates: start: 20090701
  2. SIMVASTATIN [Concomitant]
  3. VALSARTAN [Concomitant]
  4. FINASTERIDE [Concomitant]

REACTIONS (5)
  - ANAEMIA [None]
  - HAEMATOCHEZIA [None]
  - HAEMORRHAGE [None]
  - LEUKOPENIA [None]
  - DYSPNOEA EXERTIONAL [None]
